FAERS Safety Report 23411928 (Version 1)
Quarter: 2024Q1

REPORT INFORMATION
  Report Type: Spontaneous
  Country: US (occurrence: US)
  Receive Date: 20240117
  Receipt Date: 20240117
  Transmission Date: 20240410
  Serious: No
  Sender: FDA-Public Use
  Company Number: US-Covis Pharma GmbH-2024COV00037

PATIENT
  Age: 78 Year
  Sex: Female
  Weight: 62.198 kg

DRUGS (28)
  1. PRILOSEC [Suspect]
     Active Substance: OMEPRAZOLE MAGNESIUM
  2. CALQUENCE [Suspect]
     Active Substance: ACALABRUTINIB
     Indication: Mantle cell lymphoma
     Route: 048
     Dates: start: 20220318
  3. ACETAMINOPHEN [Suspect]
     Active Substance: ACETAMINOPHEN
  4. ATENOLOL [Suspect]
     Active Substance: ATENOLOL
  5. BRIMONIDINE [Suspect]
     Active Substance: BRIMONIDINE TARTRATE
  6. BUSPIRONE [Suspect]
     Active Substance: BUSPIRONE HYDROCHLORIDE
  7. CRESTOR [Suspect]
     Active Substance: ROSUVASTATIN CALCIUM
  8. CYCLOBENZAPRINE [Suspect]
     Active Substance: CYCLOBENZAPRINE
  9. CYMBALTA [Suspect]
     Active Substance: DULOXETINE HYDROCHLORIDE
  10. ELIQUIS [Suspect]
     Active Substance: APIXABAN
  11. FERROUS SULFATE [Suspect]
     Active Substance: FERROUS SULFATE
  12. FOLIC ACID [Suspect]
     Active Substance: FOLIC ACID
  13. HYDROCHLOROTHIAZIDE [Suspect]
     Active Substance: HYDROCHLOROTHIAZIDE
  14. HYDROXYZINE [Suspect]
     Active Substance: HYDROXYZINE HYDROCHLORIDE
  15. IMBRUVICA [Suspect]
     Active Substance: IBRUTINIB
  16. LATANOPROST [Suspect]
     Active Substance: LATANOPROST
  17. MELOXICAM [Suspect]
     Active Substance: MELOXICAM
  18. METOPROLOL [Suspect]
     Active Substance: METOPROLOL
  19. VITAMINS [Suspect]
     Active Substance: VITAMINS
  20. OCUVITE [Suspect]
     Active Substance: VITAMINS
  21. PEPCID [Suspect]
     Active Substance: FAMOTIDINE
  22. POTASSIUM CHLORIDE [Suspect]
     Active Substance: POTASSIUM CHLORIDE
  23. QVAR [Suspect]
     Active Substance: BECLOMETHASONE DIPROPIONATE
  24. TRAMADOL [Suspect]
     Active Substance: TRAMADOL\TRAMADOL HYDROCHLORIDE
  25. TRAVATAN Z [Suspect]
     Active Substance: TRAVOPROST
  26. VALSARTAN [Suspect]
     Active Substance: VALSARTAN
  27. VITAMIN B12 [Suspect]
     Active Substance: CYANOCOBALAMIN
  28. ZYRTEC [Suspect]
     Active Substance: CETIRIZINE HYDROCHLORIDE

REACTIONS (1)
  - Rash [Unknown]
